FAERS Safety Report 8135055-4 (Version None)
Quarter: 2012Q1

REPORT INFORMATION
  Report Type: 
  Country: None (occurrence: None)
  Receive Date: 20120214
  Receipt Date: 20120206
  Transmission Date: 20120608
  Serious: Yes (Other)
  Sender: FDA-Public Use
  Company Number: US-US-EMD SERONO, INC.-7104560

PATIENT
  Sex: Female
  Weight: 79 kg

DRUGS (18)
  1. VITAMIN D [Concomitant]
     Route: 048
     Dates: start: 20111118
  2. DEPAKOTE [Concomitant]
     Dates: start: 20070101
  3. SEROQUEL [Concomitant]
     Dates: start: 20070101
  4. LORTAB [Concomitant]
     Dosage: 5 MG- 500 MG
     Route: 048
     Dates: start: 20111107
  5. THYROID TAB [Concomitant]
     Route: 048
     Dates: start: 20111107
  6. REBIF [Suspect]
     Indication: MULTIPLE SCLEROSIS
     Route: 058
     Dates: start: 20111130
  7. KLONOPIN [Concomitant]
     Dates: start: 20070101
  8. SEROQUEL [Concomitant]
     Dates: start: 20111107
  9. SINEMET [Concomitant]
     Dosage: 25 MG- 100 MG
     Route: 048
     Dates: start: 20111107
  10. KLONOPIN [Concomitant]
     Route: 048
     Dates: start: 20111107
  11. AMANTADINE HCL [Concomitant]
     Dosage: ONE TABLET IN THE MORNING AND THEN TWO IN THE MORNING
     Route: 048
     Dates: start: 20120130
  12. REBIF [Suspect]
     Route: 058
     Dates: start: 20120101
  13. LITHIUM ASPARTATE [Concomitant]
     Dates: start: 20070101
  14. LITHIUM ASPARTATE [Concomitant]
     Dates: start: 20111107
  15. DEPAKOTE [Concomitant]
     Route: 048
     Dates: start: 20111107
  16. ACETAMINOPHEN [Concomitant]
     Dates: start: 20111107
  17. BENADRYL [Concomitant]
     Dates: start: 20111107
  18. SOMA [Concomitant]
     Dosage: FOUR TABLETS AS NEEDED
     Route: 048
     Dates: start: 20111107

REACTIONS (8)
  - BACK PAIN [None]
  - INFLUENZA LIKE ILLNESS [None]
  - FATIGUE [None]
  - EPISTAXIS [None]
  - DEPRESSION [None]
  - KIDNEY INFECTION [None]
  - PALPITATIONS [None]
  - DEHYDRATION [None]
